FAERS Safety Report 25137387 (Version 1)
Quarter: 2025Q1

REPORT INFORMATION
  Report Type: Spontaneous
  Country: US (occurrence: US)
  Receive Date: 20250329
  Receipt Date: 20250329
  Transmission Date: 20250409
  Serious: Yes (Other)
  Sender: ROCHE
  Company Number: US-ROCHE-10000242176

PATIENT
  Sex: Male

DRUGS (3)
  1. ERIVEDGE [Suspect]
     Active Substance: VISMODEGIB
     Indication: Basal cell carcinoma
     Route: 048
  2. PREDNISONE [Concomitant]
     Active Substance: PREDNISONE
  3. XTANDI [Concomitant]
     Active Substance: ENZALUTAMIDE

REACTIONS (3)
  - Fatigue [Not Recovered/Not Resolved]
  - Prostate cancer stage IV [Not Recovered/Not Resolved]
  - Sinus disorder [Not Recovered/Not Resolved]
